FAERS Safety Report 8253770-9 (Version None)
Quarter: 2012Q2

REPORT INFORMATION
  Report Type: 
  Country: None (occurrence: None)
  Receive Date: 20120402
  Receipt Date: 20120314
  Transmission Date: 20120825
  Serious: Yes (Other)
  Sender: FDA-Public Use
  Company Number: US-AMGEN-USASP2012013039

PATIENT
  Age: 63 Year
  Sex: Female

DRUGS (2)
  1. LEFLUNOMIDE [Concomitant]
     Dosage: UNK
  2. ENBREL [Suspect]
     Indication: RHEUMATOID ARTHRITIS
     Dosage: 50 MG, QWK
     Dates: start: 20110901

REACTIONS (7)
  - STEVENS-JOHNSON SYNDROME [None]
  - OEDEMA [None]
  - BLISTER [None]
  - SKIN REACTION [None]
  - RASH [None]
  - URTICARIA [None]
  - DRUG INTERACTION [None]
